FAERS Safety Report 10670100 (Version 1)
Quarter: 2014Q4

REPORT INFORMATION
  Report Type: Spontaneous
  Country: BR (occurrence: BR)
  Receive Date: 20141223
  Receipt Date: 20141223
  Transmission Date: 20150529
  Serious: Yes (Other)
  Sender: FDA-Public Use
  Company Number: BR-ROCHE-1512372

PATIENT
  Age: 43 Year
  Sex: Female
  Weight: 59 kg

DRUGS (8)
  1. DECADRON [Concomitant]
     Active Substance: DEXAMETHASONE
     Indication: NON-HODGKIN^S LYMPHOMA
     Dosage: PERIOD OF TIME TO ADMINISTER: 15 MINUTES
     Route: 042
     Dates: start: 20141103
  2. FAULDVINCRI [Concomitant]
     Active Substance: VINCRISTINE SULFATE
     Indication: NON-HODGKIN^S LYMPHOMA
     Dosage: PERIOD OF TIME TO ADMINISTER: 10 MINUTES
     Route: 042
     Dates: start: 20141103
  3. FAULDOXO [Concomitant]
     Active Substance: DOXORUBICIN HYDROCHLORIDE
     Indication: NON-HODGKIN^S LYMPHOMA
     Dosage: PERIOD OF TIME TO ADMINISTER: 10 MINUTES
     Route: 042
     Dates: start: 20141103
  4. MABTHERA [Suspect]
     Active Substance: RITUXIMAB
     Route: 042
     Dates: start: 20141103
  5. MABTHERA [Suspect]
     Active Substance: RITUXIMAB
     Route: 042
     Dates: start: 20141103
  6. MABTHERA [Suspect]
     Active Substance: RITUXIMAB
     Indication: NON-HODGKIN^S LYMPHOMA
     Route: 042
     Dates: start: 20141103
  7. DIFENIDRIN [Concomitant]
     Active Substance: DIPHENHYDRAMINE
     Dosage: PERIOD OF TIME TO ADMINISTER: 20 MINUTES
     Route: 042
     Dates: start: 20141103
  8. GENUXAL [Concomitant]
     Active Substance: CYCLOPHOSPHAMIDE
     Indication: NON-HODGKIN^S LYMPHOMA
     Dosage: PERIOD OF TIME TO ADMINISTER: 40 MINUTES
     Route: 042
     Dates: start: 20141103

REACTIONS (3)
  - Headache [Recovered/Resolved]
  - Eye irritation [Recovered/Resolved]
  - Throat irritation [Recovered/Resolved]

NARRATIVE: CASE EVENT DATE: 20141103
